FAERS Safety Report 8799068 (Version 1)
Quarter: 2012Q4

REPORT INFORMATION
  Report Type: 
  Country: IT (occurrence: IT)
  Receive Date: 20120920
  Receipt Date: 20120920
  Transmission Date: 20130627
  Serious: Yes (Life-Threatening)
  Sender: FDA-Public Use
  Company Number: IT-NOVOPROD-359776

PATIENT
  Age: 54 Year
  Sex: Male

DRUGS (5)
  1. NOVORAPID FLEXPEN [Suspect]
     Indication: INTENTIONAL SELF-INJURY
     Dosage: UNK
     Route: 065
     Dates: start: 20120908, end: 20120908
  2. LANTUS [Concomitant]
     Dosage: UNK
     Dates: start: 20120908, end: 20120908
  3. DELORAZEPAM [Concomitant]
     Dosage: 1 mg, qd
     Route: 048
  4. SERETIDE [Concomitant]
  5. SPIRIVA [Concomitant]

REACTIONS (4)
  - Suicide attempt [Recovered/Resolved]
  - Intentional overdose [Recovered/Resolved]
  - Hypokalaemia [Recovered/Resolved]
  - Hypoglycaemic coma [Recovered/Resolved]
